FAERS Safety Report 16240944 (Version 2)
Quarter: 2019Q2

REPORT INFORMATION
  Report Type: Report from Study
  Country: ES (occurrence: ES)
  Receive Date: 20190425
  Receipt Date: 20190426
  Transmission Date: 20190711
  Serious: No
  Sender: FDA-Public Use
  Company Number: ES-AMGEN-ESPCT2019062993

PATIENT
  Age: 62 Year
  Sex: Male
  Weight: 89 kg

DRUGS (9)
  1. OMEPRAZOL [OMEPRAZOLE] [Concomitant]
     Dosage: 20 MILLIGRAM
     Route: 048
     Dates: start: 20171117
  2. FUROSEMIDA [FUROSEMIDE] [Concomitant]
     Dosage: 20 MILLIGRAM
     Route: 048
     Dates: start: 20180518
  3. DUPHALAC [Concomitant]
     Active Substance: LACTULOSE
     Dosage: 1 UNK
     Route: 048
     Dates: start: 20171117
  4. FUROSEMIDA [FUROSEMIDE] [Concomitant]
     Dosage: 20 MILLIGRAM
     Route: 048
     Dates: start: 20180518
  5. ALOPURINOL [Concomitant]
     Active Substance: ALLOPURINOL
     Dosage: 300 MILLIGRAM
     Route: 048
     Dates: start: 20171117
  6. ACICLOVIR [Concomitant]
     Active Substance: ACYCLOVIR
     Dosage: 800 MILLIGRAM
     Route: 048
     Dates: start: 20171117
  7. SEPTRIN [Concomitant]
     Active Substance: SULFAMETHOXAZOLE\TRIMETHOPRIM
     Dosage: 2 UNK
     Route: 048
     Dates: start: 20171117
  8. BLINATUMOMAB [Suspect]
     Active Substance: BLINATUMOMAB
     Indication: DIFFUSE LARGE B-CELL LYMPHOMA
     Dosage: 112 MICROGRAM, QD
     Route: 042
     Dates: start: 20180507, end: 20180702
  9. FERROGRADUMET [Concomitant]
     Active Substance: FERROUS SULFATE
     Dosage: 105 MILLIGRAM
     Route: 048
     Dates: start: 20171117

REACTIONS (1)
  - Transplant evaluation [Recovered/Resolved]

NARRATIVE: CASE EVENT DATE: 20180909
